FAERS Safety Report 7686994-X (Version None)
Quarter: 2011Q3

REPORT INFORMATION
  Report Type: 
  Country: None (occurrence: None)
  Receive Date: 20110816
  Receipt Date: 20110815
  Transmission Date: 20111222
  Serious: No
  Sender: FDA-Public Use
  Company Number: US-PFIZER INC-2011187750

PATIENT
  Sex: Male
  Weight: 27.211 kg

DRUGS (2)
  1. FISH OIL [Concomitant]
     Indication: ATTENTION DEFICIT/HYPERACTIVITY DISORDER
     Dosage: UNK
     Dates: start: 20090101
  2. CHILDREN'S ADVIL COLD [Suspect]
     Dosage: UNK
     Route: 048
     Dates: start: 20110814

REACTIONS (1)
  - NAUSEA [None]
